FAERS Safety Report 4714353-8 (Version None)
Quarter: 2005Q3

REPORT INFORMATION
  Report Type: 
  Country: None (occurrence: None)
  Receive Date: 20050714
  Receipt Date: 20050408
  Transmission Date: 20060218
  Serious: Yes (Other)
  Sender: FDA-Public Use
  Company Number: US-ROCHE-401586

PATIENT
  Age: 7 Year
  Sex: Male
  Weight: 22.5 kg

DRUGS (2)
  1. TAMIFLU [Suspect]
     Indication: INFLUENZA
     Dosage: DOSAGE REPORTED AS ^ ONE TEASPOON TWICE^. THERAPY END DATE: REPORTEDLY 29 FEBRUARY 2005.
     Route: 048
     Dates: start: 20050224, end: 20050301
  2. ZITHROMAX [Concomitant]
     Indication: INFLUENZA
     Route: 065
     Dates: start: 20050227

REACTIONS (2)
  - MYOSITIS [None]
  - VOMITING [None]
